FAERS Safety Report 20432323 (Version 5)
Quarter: 2022Q1

REPORT INFORMATION
  Report Type: Report from Study
  Country: CN (occurrence: None)
  Receive Date: 20220204
  Receipt Date: 20220304
  Transmission Date: 20220423
  Serious: Yes (Death, Life-Threatening, Hospitalization)
  Sender: FDA-Public Use
  Company Number: CN-Eisai Medical Research-EC-2022-108147

PATIENT
  Age: 65 Year
  Sex: Female
  Weight: 54 kg

DRUGS (17)
  1. LENVATINIB [Suspect]
     Active Substance: LENVATINIB
     Indication: Renal cell carcinoma
     Route: 048
     Dates: start: 20211210, end: 20220108
  2. LENVATINIB [Suspect]
     Active Substance: LENVATINIB
     Route: 048
     Dates: start: 20220114, end: 20220114
  3. BELZUTIFAN [Suspect]
     Active Substance: BELZUTIFAN
     Indication: Renal cell carcinoma
     Route: 048
     Dates: start: 20211119, end: 20220105
  4. BELZUTIFAN [Suspect]
     Active Substance: BELZUTIFAN
     Route: 048
     Dates: start: 20220114
  5. ATORVASTATIN [Concomitant]
     Active Substance: ATORVASTATIN
     Dates: start: 202101
  6. FENOFIBRATE [Concomitant]
     Active Substance: FENOFIBRATE
     Dates: start: 202103
  7. DENOSUMAB [Concomitant]
     Active Substance: DENOSUMAB
     Dosage: RINSE
     Dates: start: 202108
  8. FAMOTIDINE [Concomitant]
     Active Substance: FAMOTIDINE
     Dates: start: 20211109
  9. PREGABALIN [Concomitant]
     Active Substance: PREGABALIN
     Dates: start: 20211109
  10. HALOPERIDOL [Concomitant]
     Active Substance: HALOPERIDOL
     Dates: start: 20211109
  11. TRAMADOL HYDROCHLORIDE [Concomitant]
     Active Substance: TRAMADOL HYDROCHLORIDE
     Dates: start: 20211109
  12. IBUPROFEN [Concomitant]
     Active Substance: IBUPROFEN
     Dates: start: 20211109
  13. PREDNISONE ACETATE [Concomitant]
     Active Substance: PREDNISONE ACETATE
     Dates: start: 202111
  14. MEGESTROL ACETATE [Concomitant]
     Active Substance: MEGESTROL ACETATE
     Dates: start: 20211219
  15. ONDANSETRON [Concomitant]
     Active Substance: ONDANSETRON
     Dates: start: 20211220
  16. HYDROCHLOROTHIAZIDE\LOSARTAN POTASSIUM [Concomitant]
     Active Substance: HYDROCHLOROTHIAZIDE\LOSARTAN POTASSIUM
     Dates: start: 20211229
  17. LEVOTHYROXINE SODIUM [Concomitant]
     Active Substance: LEVOTHYROXINE SODIUM
     Dates: start: 20220114

REACTIONS (1)
  - Coma [Fatal]

NARRATIVE: CASE EVENT DATE: 20220131
